FAERS Safety Report 6233518-X (Version None)
Quarter: 2009Q2

REPORT INFORMATION
  Report Type: 
  Country: None (occurrence: None)
  Receive Date: 20090617
  Receipt Date: 20090609
  Transmission Date: 20091009
  Serious: Yes (Hospitalization)
  Sender: FDA-Public Use
  Company Number: PHHO2009CN07266

PATIENT
  Sex: Female
  Weight: 55 kg

DRUGS (1)
  1. RAD 666 RAD+TAB [Suspect]
     Indication: NON-SMALL CELL LUNG CANCER
     Dosage: 5 MG, QD
     Route: 048
     Dates: start: 20090311, end: 20090605

REACTIONS (2)
  - HEMIPLEGIA [None]
  - THROMBOCYTOPENIA [None]
